FAERS Safety Report 4592668-4 (Version None)
Quarter: 2005Q1

REPORT INFORMATION
  Report Type: 
  Country: None (occurrence: None)
  Receive Date: 20050222
  Receipt Date: 20050207
  Transmission Date: 20050727
  Serious: Yes (Hospitalization)
  Sender: FDA-Public Use
  Company Number: 2005017217

PATIENT
  Age: 49 Year
  Sex: Female
  Weight: 83 kg

DRUGS (7)
  1. VIBRAMYCIN [Suspect]
     Indication: GENITAL INFECTION FEMALE
     Dosage: 200 MG (100 MG, 1 D), ORAL
     Route: 048
     Dates: start: 20041108, end: 20041115
  2. TINIDAZOLE (TINIDAZOLE) [Suspect]
     Indication: GENITAL INFECTION FEMALE
     Dosage: 200 MG (500 MG, 1 D), ORAL
     Route: 048
     Dates: start: 20041108, end: 20041115
  3. POLYGYNAX (ACETARSOL, NEOMYCIN, NYSTATIN, POLYMYXIN B SULFATE) [Suspect]
     Indication: GENITAL INFECTION FEMALE
     Dosage: 1 D, VAGINAL
     Route: 067
     Dates: start: 20041108, end: 20041115
  4. GLYBURIDE [Concomitant]
  5. METOPROLOL TARTRATE [Concomitant]
  6. BETAHISTINE HYDROCHLORIDE (BETAHISTINE HYDROCHLORIDE) [Concomitant]
  7. FERROUS SULFATE TAB [Concomitant]

REACTIONS (5)
  - AUTOIMMUNE HEPATITIS [None]
  - CONDITION AGGRAVATED [None]
  - DRUG TOXICITY [None]
  - HEPATIC FIBROSIS [None]
  - SMOOTH MUSCLE ANTIBODY POSITIVE [None]
